FAERS Safety Report 7151436-X (Version None)
Quarter: 2010Q4

REPORT INFORMATION
  Report Type: 
  Country: None (occurrence: None)
  Receive Date: 20101210
  Receipt Date: 20101202
  Transmission Date: 20110411
  Serious: Yes (Other)
  Sender: FDA-Public Use
  Company Number: US-B.I. PHARMACEUTICALS,INC./RIDGEFIELD-2010-BP-13503BP

PATIENT
  Age: 64 Year
  Sex: Male

DRUGS (5)
  1. DULCOLAX [Suspect]
     Indication: CONSTIPATION
     Dosage: 10 MG
     Route: 048
     Dates: start: 20101201
  2. RAMIPRIL [Concomitant]
     Indication: HYPERTENSION
     Route: 048
  3. LIPITOR [Concomitant]
     Indication: BLOOD CHOLESTEROL INCREASED
     Route: 048
  4. LEXAPRO [Concomitant]
     Indication: DEPRESSION
     Route: 048
  5. UROXITROL [Concomitant]
     Indication: BENIGN PROSTATIC HYPERPLASIA
     Route: 048

REACTIONS (4)
  - ABDOMINAL PAIN [None]
  - HYPERHIDROSIS [None]
  - LOSS OF CONSCIOUSNESS [None]
  - NAUSEA [None]
